FAERS Safety Report 8949571 (Version 1)
Quarter: 2012Q4

REPORT INFORMATION
  Report Type: 
  Country: US (occurrence: US)
  Receive Date: 20121206
  Receipt Date: 20121206
  Transmission Date: 20130627
  Serious: Yes (Hospitalization)
  Sender: FDA-Public Use
  Company Number: US-FRI-1000040828

PATIENT
  Age: 59 Year
  Sex: Female

DRUGS (7)
  1. VIIBRYD [Suspect]
     Dosage: 10 MG
     Route: 048
     Dates: start: 201211, end: 201211
  2. VIIBRYD [Suspect]
     Dosage: 20 MG
     Route: 048
     Dates: start: 201211, end: 201211
  3. VIIBRYD [Suspect]
     Dosage: 40 MG
     Route: 048
     Dates: start: 201211, end: 20121124
  4. VIIBRYD [Suspect]
     Indication: DEPRESSION
     Dosage: 80 mg
     Route: 048
     Dates: start: 20121125, end: 20121125
  5. VIIBRYD [Suspect]
     Dosage: 40 MG
     Route: 048
     Dates: start: 201211
  6. ALBUTEROL [Concomitant]
     Indication: ASTHMA
  7. ALLEGRA [Concomitant]
     Indication: SEASONAL ALLERGY

REACTIONS (5)
  - Transient ischaemic attack [Recovered/Resolved]
  - Accidental overdose [Recovered/Resolved]
  - Disorientation [Recovered/Resolved]
  - Speech disorder [Recovered/Resolved]
  - Fatigue [Recovered/Resolved]
